FAERS Safety Report 25619047 (Version 1)
Quarter: 2025Q3

REPORT INFORMATION
  Report Type: Spontaneous
  Country: US (occurrence: US)
  Receive Date: 20250729
  Receipt Date: 20250729
  Transmission Date: 20251021
  Serious: Yes (Hospitalization)
  Sender: DR REDDYS
  Company Number: US-MLMSERVICE-20250716-PI580947-00030-1

PATIENT
  Age: 66 Year
  Sex: Male

DRUGS (1)
  1. IBUPROFEN [Suspect]
     Active Substance: IBUPROFEN
     Indication: Back pain
     Dosage: (CHRONIC USE) ?800 MG OF IBUPROFEN EVERY 4 HOURS

REACTIONS (6)
  - Fistula of small intestine [Unknown]
  - Colonic fistula [Unknown]
  - Duodenal ulcer perforation [Unknown]
  - Chronic gastritis [Unknown]
  - Intestinal metaplasia [Unknown]
  - Haemoglobin decreased [Unknown]
